FAERS Safety Report 5277686-5 (Version None)
Quarter: 2007Q1

REPORT INFORMATION
  Report Type: 
  Country: None (occurrence: None)
  Receive Date: 20070327
  Receipt Date: 20070315
  Transmission Date: 20070707
  Serious: Yes (Other)
  Sender: FDA-Public Use
  Company Number: US-PFIZER INC-2005131125

PATIENT
  Sex: Female

DRUGS (11)
  1. NEURONTIN [Suspect]
     Indication: BIPOLAR DISORDER
     Dates: start: 20030201, end: 20030801
  2. TYLENOL [Suspect]
  3. SALICYLIC ACID [Suspect]
  4. ALCOHOL [Suspect]
  5. LEXAPRO [Concomitant]
  6. SEROQUEL [Concomitant]
  7. WELLBUTRIN SR [Concomitant]
  8. GEODON [Concomitant]
  9. TRILEPTAL [Concomitant]
  10. XANAX [Concomitant]
  11. SOMA [Concomitant]

REACTIONS (5)
  - DRUG INEFFECTIVE [None]
  - HALLUCINATION, AUDITORY [None]
  - MULTIPLE DRUG OVERDOSE [None]
  - SUICIDAL IDEATION [None]
  - SUICIDE ATTEMPT [None]
